FAERS Safety Report 6786617-8 (Version None)
Quarter: 2010Q2

REPORT INFORMATION
  Report Type: 
  Country: None (occurrence: None)
  Receive Date: 20100623
  Receipt Date: 20100615
  Transmission Date: 20101027
  Serious: Yes (Death, Hospitalization, Other)
  Sender: FDA-Public Use
  Company Number: NL-BAYER-201029337GPV

PATIENT
  Age: 9 Year
  Sex: Male

DRUGS (20)
  1. ALEMTUZUMAB [Suspect]
     Indication: STEM CELL TRANSPLANT
  2. FLUDARABINE [Suspect]
     Indication: STEM CELL TRANSPLANT
     Dosage: TOTAL DAILY DOSE: 30 MG/M2
  3. PREDNISONE [Suspect]
     Indication: PROPHYLAXIS AGAINST TRANSPLANT REJECTION
     Dosage: OOW-DOSE
  4. TREOSULFAN [Suspect]
     Indication: STEM CELL TRANSPLANT
     Dosage: TOTAL DAILY DOSE: 14000 MG/M2
  5. ANTI-THYMOCYTE GLOBULIN NOS [Suspect]
     Indication: STEM CELL TRANSPLANT
  6. CYCLOPHOSPHAMIDE [Suspect]
     Indication: STEM CELL TRANSPLANT
  7. MELPHALAN HYDROCHLORIDE [Suspect]
     Indication: STEM CELL TRANSPLANT
  8. HEMATIN [Concomitant]
     Indication: HEPATIC FAILURE
  9. URSODIOL [Concomitant]
     Indication: HEPATIC FAILURE
  10. BASILIXIMAB [Concomitant]
     Indication: LIVER TRANSPLANT
  11. TACROLIMUS [Concomitant]
     Indication: LIVER TRANSPLANT
  12. MMF [Concomitant]
     Indication: IMMUNOSUPPRESSANT DRUG THERAPY
  13. CHENODEOXYCHOLIC ACID [Concomitant]
     Indication: HEPATOTOXICITY
  14. DEFIBROTIDE [Concomitant]
     Indication: THROMBOSIS PROPHYLAXIS
  15. AMPHOTERICIN B [Concomitant]
     Indication: INFECTION PROPHYLAXIS
  16. POLYMYXIN [Concomitant]
     Indication: INFECTION PROPHYLAXIS
  17. NEOMYCIN [Concomitant]
     Indication: INFECTION PROPHYLAXIS
  18. IMMU-G [Concomitant]
     Indication: INFECTION PROPHYLAXIS
     Route: 042
  19. PENTAMIDINE ISETHIONATE [Concomitant]
     Indication: ANTIFUNGAL PROPHYLAXIS
     Route: 055
  20. VALACYCLOVIR [Concomitant]
     Indication: PROPHYLAXIS

REACTIONS (13)
  - ADENOVIRUS INFECTION [None]
  - DEHYDRATION [None]
  - EAR INFECTION [None]
  - GASTROENTERITIS VIRAL [None]
  - HERPES ZOSTER [None]
  - MULTI-ORGAN FAILURE [None]
  - OPTIC NEURITIS [None]
  - RESPIRATORY FAILURE [None]
  - RETINITIS [None]
  - STAPHYLOCOCCAL SCALDED SKIN SYNDROME [None]
  - STAPHYLOCOCCAL SKIN INFECTION [None]
  - VANISHING BILE DUCT SYNDROME [None]
  - VARICELLA VIRUS TEST POSITIVE [None]
